FAERS Safety Report 6564267-6 (Version None)
Quarter: 2010Q1

REPORT INFORMATION
  Report Type: 
  Country: None (occurrence: None)
  Receive Date: 20100201
  Receipt Date: 20091231
  Transmission Date: 20100710
  Serious: No
  Sender: FDA-Public Use
  Company Number: US-BAYER-201010159NA

PATIENT
  Age: 34 Year
  Sex: Female

DRUGS (2)
  1. YAZ [Suspect]
     Indication: CONTRACEPTION
     Route: 048
     Dates: start: 20070801, end: 20090901
  2. YAZ [Suspect]
     Route: 048
     Dates: start: 20070801, end: 20090901

REACTIONS (2)
  - NEURALGIA [None]
  - PARAESTHESIA [None]
